FAERS Safety Report 10568097 (Version 1)
Quarter: 2014Q4

REPORT INFORMATION
  Report Type: Spontaneous
  Country: US (occurrence: None)
  Receive Date: 20141024
  Receipt Date: 20141024
  Transmission Date: 20150529
  Serious: Yes (Hospitalization)
  Sender: FDA-Public Use
  Company Number: AXC-2013-000691

PATIENT
  Age: 84 Year
  Sex: Female
  Weight: 54.4 kg

DRUGS (3)
  1. ZENPEP [Suspect]
     Active Substance: PANCRELIPASE\PANCRELIPASE AMYLASE\PANCRELIPASE LIPASE\PANCRELIPASE PROTEASE
     Indication: DIARRHOEA
     Dosage: 1000USP, QD WITH MEALS, ORAL
     Route: 048
     Dates: start: 2009
  2. ZENPEP [Suspect]
     Active Substance: PANCRELIPASE\PANCRELIPASE AMYLASE\PANCRELIPASE LIPASE\PANCRELIPASE PROTEASE
     Indication: DIARRHOEA
     Dosage: 5000 USP, QD, WITH MEALS, ORAL
     Route: 048
     Dates: start: 2009, end: 20131222
  3. ASPIRIN (ACETYLSALICYLIC ACID) [Concomitant]
     Active Substance: ASPIRIN

REACTIONS (4)
  - Muscle spasms [None]
  - Condition aggravated [None]
  - Abdominal distension [None]
  - Localised infection [None]

NARRATIVE: CASE EVENT DATE: 2013
